FAERS Safety Report 7670246-8 (Version None)
Quarter: 2011Q3

REPORT INFORMATION
  Report Type: 
  Country: None (occurrence: None)
  Receive Date: 20110809
  Receipt Date: 20110801
  Transmission Date: 20111222
  Serious: Yes (Life-Threatening, Hospitalization)
  Sender: FDA-Public Use
  Company Number: FR-BRISTOL-MYERS SQUIBB COMPANY-15940539

PATIENT
  Age: 58 Year
  Sex: Female

DRUGS (6)
  1. ZEVALIN [Suspect]
     Indication: LYMPHOMA
     Route: 042
     Dates: start: 20081121
  2. ETOPOSIDE [Suspect]
     Indication: LYMPHOMA
     Dates: start: 20081129, end: 20081204
  3. ALKERAN [Suspect]
     Indication: LYMPHOMA
     Dates: start: 20081129, end: 20081204
  4. BICNU [Suspect]
     Indication: LYMPHOMA
     Route: 042
     Dates: start: 20081128, end: 20081204
  5. CYTARABINE [Suspect]
     Indication: LYMPHOMA
     Route: 042
     Dates: start: 20081129, end: 20081204
  6. MABTHERA [Suspect]
     Indication: LYMPHOMA
     Route: 042
     Dates: start: 20060101, end: 20091001

REACTIONS (1)
  - PROGRESSIVE MULTIFOCAL LEUKOENCEPHALOPATHY [None]
